FAERS Safety Report 7625839-0 (Version None)
Quarter: 2011Q3

REPORT INFORMATION
  Report Type: 
  Country: None (occurrence: None)
  Receive Date: 20110721
  Receipt Date: 20110719
  Transmission Date: 20111222
  Serious: No
  Sender: FDA-Public Use
  Company Number: US-PFIZER INC-2011163740

PATIENT
  Sex: Male

DRUGS (2)
  1. VITAMIN-MINERAL COMPOUND TAB [Interacting]
     Indication: VITAMIN SUPPLEMENTATION
     Dosage: UNK
     Dates: start: 20110701
  2. DILANTIN [Suspect]
     Indication: EPILEPSY
     Dosage: UNK, 2X/DAY
     Route: 048

REACTIONS (2)
  - LETHARGY [None]
  - DRUG INTERACTION [None]
